FAERS Safety Report 7797294-1 (Version None)
Quarter: 2011Q4

REPORT INFORMATION
  Report Type: 
  Country: None (occurrence: None)
  Receive Date: 20111005
  Receipt Date: 20111003
  Transmission Date: 20120403
  Serious: Yes (Death, Hospitalization)
  Sender: FDA-Public Use
  Company Number: PHHY2011DO87625

PATIENT
  Age: 69 Year
  Sex: Female

DRUGS (7)
  1. LORATADINE [Concomitant]
  2. ENALAPRIL MALEATE [Concomitant]
  3. INSULIN [Concomitant]
  4. HYDROCHLOROTHIAZIDE [Concomitant]
  5. FORADIL [Suspect]
     Indication: ASTHMA
     Dosage: 12 UG, BID
  6. DAFLON (DIOSMIN) [Concomitant]
  7. METFORMIN HCL [Concomitant]

REACTIONS (3)
  - DEATH [None]
  - HYPERTENSION [None]
  - DIABETES MELLITUS [None]
